FAERS Safety Report 7717292-3 (Version None)
Quarter: 2011Q3

REPORT INFORMATION
  Report Type: 
  Country: None (occurrence: None)
  Receive Date: 20110818
  Receipt Date: 20110718
  Transmission Date: 20111222
  Serious: No
  Sender: FDA-Public Use
  Company Number: 1000022268

PATIENT
  Sex: Male

DRUGS (1)
  1. VIIBRYD [Suspect]
     Dosage: 10 MG (10 MG), ORAL
     Route: 048

REACTIONS (3)
  - FATIGUE [None]
  - HANGOVER [None]
  - FEELING ABNORMAL [None]
